FAERS Safety Report 7395742-2 (Version None)
Quarter: 2011Q2

REPORT INFORMATION
  Report Type: 
  Country: None (occurrence: None)
  Receive Date: 20110405
  Receipt Date: 20110329
  Transmission Date: 20111010
  Serious: Yes (Hospitalization)
  Sender: FDA-Public Use
  Company Number: NL-MEDIMMUNE-MEDI-0013030

PATIENT
  Sex: Male
  Weight: 6.23 kg

DRUGS (3)
  1. SYNAGIS [Suspect]
     Route: 030
     Dates: start: 20110301, end: 20110329
  2. ACETYLSALICYLATE CALCIUM [Concomitant]
     Dates: start: 20100101
  3. SYNAGIS [Suspect]
     Route: 030
     Dates: start: 20101111, end: 20101111

REACTIONS (3)
  - PYREXIA [None]
  - COUGH [None]
  - PNEUMOCOCCAL INFECTION [None]
